FAERS Safety Report 19512986 (Version 1)
Quarter: 2021Q3

REPORT INFORMATION
  Report Type: Spontaneous
  Country: CN (occurrence: CN)
  Receive Date: 20210709
  Receipt Date: 20210709
  Transmission Date: 20211014
  Serious: Yes (Other)
  Sender: FDA-Public Use
  Company Number: CN-PFIZER INC-2021790925

PATIENT
  Age: 71 Year
  Sex: Male

DRUGS (2)
  1. CARBOPLATIN. [Suspect]
     Active Substance: CARBOPLATIN
     Dosage: 30 MG, CYCLIC (DAY 1)
  2. PACLITAXEL. [Suspect]
     Active Substance: PACLITAXEL
     Dosage: 240 MG, CYCLIC (DAY 1)

REACTIONS (2)
  - Chromosomal deletion [Unknown]
  - Plasma cell myeloma [Unknown]
